FAERS Safety Report 6760581-X (Version None)
Quarter: 2010Q2

REPORT INFORMATION
  Report Type: 
  Country: None (occurrence: None)
  Receive Date: 20100608
  Receipt Date: 20100527
  Transmission Date: 20101027
  Serious: Yes (Other)
  Sender: FDA-Public Use
  Company Number: US-PFIZER INC-2010068248

PATIENT
  Sex: Female

DRUGS (2)
  1. DETROL LA [Suspect]
     Indication: HYPERTONIC BLADDER
     Dosage: 4 MG, 1X/DAY
     Route: 048
     Dates: end: 20100526
  2. DEPAKOTE [Suspect]
     Dosage: 1000 MG, 1X/DAY
     Route: 048
     Dates: start: 20091101

REACTIONS (2)
  - LIVER FUNCTION TEST ABNORMAL [None]
  - MUSCLE SPASMS [None]
